FAERS Safety Report 7915435-X (Version None)
Quarter: 2011Q4

REPORT INFORMATION
  Report Type: 
  Country: None (occurrence: None)
  Receive Date: 20111115
  Receipt Date: 20111104
  Transmission Date: 20120403
  Serious: Yes (Other)
  Sender: FDA-Public Use
  Company Number: PHHY2011GB097449

PATIENT
  Age: 75 Year
  Sex: Female
  Weight: 59 kg

DRUGS (5)
  1. PERINDOPRIL ERBUMINE [Concomitant]
     Dosage: UNK
     Dates: start: 20110725
  2. VERAPAMIL HYDROCHLORIDE [Concomitant]
     Dosage: UNK
     Dates: start: 20110725, end: 20110919
  3. ALENDRONIC ACID [Concomitant]
     Dosage: UNK
     Dates: start: 20110725
  4. INDAPAMIDE [Suspect]
     Dosage: UNK
     Dates: start: 20111021
  5. ASPIRIN [Concomitant]
     Dosage: UNK
     Dates: start: 20110725

REACTIONS (3)
  - FEELING ABNORMAL [None]
  - PAIN IN EXTREMITY [None]
  - MALAISE [None]
